FAERS Safety Report 10158440 (Version 1)
Quarter: 2014Q2

REPORT INFORMATION
  Report Type: Report from Study
  Country: AR (occurrence: AR)
  Receive Date: 20140507
  Receipt Date: 20140507
  Transmission Date: 20141212
  Serious: Yes (Other)
  Sender: FDA-Public Use
  Company Number: PHHY2014AR055340

PATIENT
  Age: 72 Year
  Sex: Male

DRUGS (1)
  1. EXFORGE [Suspect]
     Indication: HYPERTENSION
     Dosage: 1 DF, (160/10 MG) PER DAY
     Route: 048

REACTIONS (1)
  - Maculopathy [Recovering/Resolving]
